FAERS Safety Report 10180139 (Version 2)
Quarter: 2014Q2

REPORT INFORMATION
  Report Type: Spontaneous
  Country: US (occurrence: US)
  Receive Date: 20140519
  Receipt Date: 20140519
  Transmission Date: 20141212
  Serious: No
  Sender: FDA-Public Use
  Company Number: US-AMGEN INC.-USASP2013070639

PATIENT
  Age: 50 Year
  Sex: Female
  Weight: 71.66 kg

DRUGS (4)
  1. PROLIA [Suspect]
     Indication: PRODUCT USED FOR UNKNOWN INDICATION
     Dosage: 60 UNK, Q6MO
     Route: 065
     Dates: start: 20110414, end: 20110414
  2. NEXIUM                             /01479302/ [Concomitant]
     Indication: GASTROOESOPHAGEAL REFLUX DISEASE
     Dosage: 40 UNK, UNK
  3. SERTRALINE [Concomitant]
     Indication: DEPRESSION
  4. OSCAL D                            /07451701/ [Concomitant]

REACTIONS (2)
  - Acne [Recovered/Resolved]
  - Incorrect route of drug administration [Unknown]
